FAERS Safety Report 7077973-4 (Version None)
Quarter: 2010Q4

REPORT INFORMATION
  Report Type: 
  Country: None (occurrence: None)
  Receive Date: 20101101
  Receipt Date: 20101025
  Transmission Date: 20110411
  Serious: Yes (Hospitalization)
  Sender: FDA-Public Use
  Company Number: US-GILEAD-2010-0032762

PATIENT
  Sex: Male

DRUGS (2)
  1. LETAIRIS [Suspect]
     Indication: PORTOPULMONARY HYPERTENSION
     Route: 048
     Dates: start: 20101009
  2. BOSENTAN [Concomitant]
     Indication: PORTOPULMONARY HYPERTENSION
     Dates: end: 20101009

REACTIONS (1)
  - LIVER TRANSPLANT [None]
